FAERS Safety Report 5531339-4 (Version None)
Quarter: 2007Q4

REPORT INFORMATION
  Report Type: 
  Country: None (occurrence: None)
  Receive Date: 20071128
  Receipt Date: 20071119
  Transmission Date: 20080405
  Serious: Yes (Disabling)
  Sender: FDA-Public Use
  Company Number: GXKR2007DE09843

PATIENT
  Sex: Male
  Weight: 80 kg

DRUGS (4)
  1. TRAMADOLOR (NGX) (TRAMADOL) CAPSULE, 100MG [Suspect]
     Indication: INTERVERTEBRAL DISC OPERATION
     Dosage: ORAL
     Route: 048
     Dates: start: 20030716, end: 20031219
  2. THYRONAJOD (LEVOTHYROXINE SODIUM, POTASSIUM IODIDE) [Concomitant]
  3. METOHEXAL (METOPROLOL TARTRATE) [Concomitant]
  4. MOCLOBEMIDE (MOCLOBEMIDE) [Concomitant]

REACTIONS (8)
  - ASTHENIA [None]
  - DISTURBANCE IN ATTENTION [None]
  - DIZZINESS [None]
  - FATIGUE [None]
  - HEADACHE [None]
  - HYPERACUSIS [None]
  - HYPERHIDROSIS [None]
  - NEUROTOXICITY [None]
